FAERS Safety Report 12560936 (Version 1)
Quarter: 2016Q3

REPORT INFORMATION
  Report Type: Spontaneous
  Country: US (occurrence: None)
  Receive Date: 20160714
  Receipt Date: 20160714
  Transmission Date: 20161109
  Serious: Yes (Death, Hospitalization)
  Sender: FDA-Public Use
  Company Number: None

PATIENT
  Age: 70 Year
  Sex: Male
  Weight: 105.9 kg

DRUGS (3)
  1. IDARUBICIN [Suspect]
     Active Substance: IDARUBICIN
     Dates: end: 20160608
  2. CYTARABINE. [Suspect]
     Active Substance: CYTARABINE
     Dates: end: 20160609
  3. PRAVASTATIN SODIUM. [Suspect]
     Active Substance: PRAVASTATIN SODIUM
     Dates: end: 20160610

REACTIONS (3)
  - Laceration [None]
  - Fall [None]
  - Pneumonia [None]

NARRATIVE: CASE EVENT DATE: 20160629
